FAERS Safety Report 6269937-5 (Version None)
Quarter: 2009Q3

REPORT INFORMATION
  Report Type: 
  Country: None (occurrence: None)
  Receive Date: 20090716
  Receipt Date: 20090513
  Transmission Date: 20100115
  Serious: Yes (Other)
  Sender: FDA-Public Use
  Company Number: US-BAYER-200919928NA

PATIENT
  Age: 55 Year
  Sex: Female
  Weight: 90 kg

DRUGS (23)
  1. MAGNEVIST [Suspect]
     Indication: ANGIOGRAM
     Dates: start: 20040720, end: 20040720
  2. OMNISCAN [Suspect]
     Indication: NUCLEAR MAGNETIC RESONANCE IMAGING
  3. OPTIMARK [Suspect]
     Indication: NUCLEAR MAGNETIC RESONANCE IMAGING
  4. PROHANCE [Suspect]
     Indication: NUCLEAR MAGNETIC RESONANCE IMAGING
  5. MULTIHANCE [Suspect]
     Indication: NUCLEAR MAGNETIC RESONANCE IMAGING
  6. ARANESP [Concomitant]
  7. NIFEDIPINE [Concomitant]
  8. METOPROLOL TARTRATE [Concomitant]
  9. LIPITOR [Concomitant]
  10. CALCITRIOL [Concomitant]
  11. PHOSLO [Concomitant]
  12. CELEXA [Concomitant]
  13. MULTI-VITAMINS [Concomitant]
  14. SODIUM BICARBONATE [Concomitant]
  15. VALCYTE [Concomitant]
  16. PRILOSEC [Concomitant]
  17. DAPSONE [Concomitant]
  18. EPOGEN [Concomitant]
  19. LITHIUM CARBONATE [Concomitant]
     Indication: BIPOLAR DISORDER
     Dates: start: 19760101, end: 19960101
  20. DEPAKOTE [Concomitant]
  21. PROGRAF [Concomitant]
  22. RITUXIMAB [Concomitant]
     Dates: start: 20041101, end: 20041101
  23. RENAGEL [Concomitant]

REACTIONS (25)
  - BURNING SENSATION [None]
  - DEFORMITY [None]
  - ERYTHEMA [None]
  - FIBROSIS [None]
  - GENERAL PHYSICAL HEALTH DETERIORATION [None]
  - HYPERAEMIA [None]
  - JOINT RANGE OF MOTION DECREASED [None]
  - MOBILITY DECREASED [None]
  - MUSCLE ATROPHY [None]
  - MUSCLE TIGHTNESS [None]
  - MUSCULAR WEAKNESS [None]
  - MUSCULOSKELETAL STIFFNESS [None]
  - NEPHROGENIC SYSTEMIC FIBROSIS [None]
  - NODULE ON EXTREMITY [None]
  - OEDEMA [None]
  - PAIN [None]
  - PRURITUS [None]
  - RASH ERYTHEMATOUS [None]
  - RASH PAPULAR [None]
  - SCAR [None]
  - SKIN ATROPHY [None]
  - SKIN HYPERPIGMENTATION [None]
  - SKIN INDURATION [None]
  - SKIN LESION [None]
  - SKIN TIGHTNESS [None]
